FAERS Safety Report 4817719-0 (Version None)
Quarter: 2005Q4

REPORT INFORMATION
  Report Type: 
  Country: None (occurrence: None)
  Receive Date: 20051101
  Receipt Date: 20051101
  Transmission Date: 20060501
  Serious: Yes (Death, Hospitalization)
  Sender: FDA-Public Use
  Company Number: None

PATIENT
  Age: 68 Year
  Sex: Female
  Weight: 61.2356 kg

DRUGS (2)
  1. TARCEVA [Suspect]
     Indication: GLIOBLASTOMA MULTIFORME
     Dosage: 150 MG DAILY
     Dates: start: 20050804, end: 20050930
  2. TEMODAR [Suspect]
     Indication: GLIOBLASTOMA MULTIFORME
     Dosage: 100 - 200 MG/DAY

REACTIONS (5)
  - CULTURE POSITIVE [None]
  - CYTOMEGALOVIRUS INFECTION [None]
  - GENERAL PHYSICAL HEALTH DETERIORATION [None]
  - PNEUMOCYSTIS JIROVECI INFECTION [None]
  - RESPIRATORY FAILURE [None]
